FAERS Safety Report 20350110 (Version 1)
Quarter: 2022Q1

REPORT INFORMATION
  Report Type: Report from Study
  Country: US (occurrence: US)
  Receive Date: 20220119
  Receipt Date: 20220119
  Transmission Date: 20220424
  Serious: Yes (Other)
  Sender: FDA-Public Use
  Company Number: US-ABBVIE-21K-163-3923642-00

PATIENT
  Age: 64 Year
  Sex: Female

DRUGS (1)
  1. HUMIRA [Suspect]
     Active Substance: ADALIMUMAB
     Indication: Psoriatic arthropathy
     Route: 058
     Dates: end: 202104

REACTIONS (9)
  - Gastric disorder [Recovering/Resolving]
  - Gallbladder disorder [Unknown]
  - Mobility decreased [Recovering/Resolving]
  - Hernia [Unknown]
  - Crying [Unknown]
  - Eructation [Unknown]
  - Nausea [Recovering/Resolving]
  - Rash macular [Unknown]
  - Musculoskeletal chest pain [Unknown]

NARRATIVE: CASE EVENT DATE: 20211206
